FAERS Safety Report 5654367 (Version 2)
Quarter: 2013Q2

REPORT INFORMATION
  Report Type: Spontaneous
  Country: US (occurrence: US)
  Receive Date: 20041028
  Receipt Date: 20130528
  Transmission Date: 20140414
  Serious: Yes (Hospitalization, Congenital Anomaly)
  Sender: FDA-Public Use
  Company Number: US-GLAXOSMITHKLINE-A0125304A

PATIENT
  Sex: Female

DRUGS (1)
  1. ZOFRAN [Suspect]
     Indication: NAUSEA
     Route: 064

REACTIONS (16)
  - Syndactyly [Not Recovered/Not Resolved]
  - Microcephaly [Unknown]
  - Low set ears [Unknown]
  - Failure to thrive [Unknown]
  - Deafness [Unknown]
  - Congenital diaphragmatic anomaly [Unknown]
  - Arterial stenosis [Unknown]
  - Congenital inguinal hernia [Unknown]
  - Low birth weight baby [Unknown]
  - Speech disorder developmental [Unknown]
  - Renal cyst [Unknown]
  - Dysmorphism [Unknown]
  - Photophobia [Unknown]
  - Cardiac murmur [Unknown]
  - Developmental delay [Unknown]
  - Learning disability [Unknown]
